FAERS Safety Report 11361941 (Version 4)
Quarter: 2015Q3

REPORT INFORMATION
  Report Type: Report from Study
  Country: AR (occurrence: AR)
  Receive Date: 20150810
  Receipt Date: 20150928
  Transmission Date: 20151125
  Serious: Yes (Hospitalization, Other)
  Sender: FDA-Public Use
  Company Number: PHHY2015AR093532

PATIENT
  Age: 55 Year
  Sex: Male

DRUGS (2)
  1. AURENE [Concomitant]
     Active Substance: OXCARBAZEPINE
     Indication: PRODUCT USED FOR UNKNOWN INDICATION
     Route: 065
  2. TRILEPTAL [Suspect]
     Active Substance: OXCARBAZEPINE
     Indication: EPILEPSY
     Dosage: 600 OT, TID
     Route: 065

REACTIONS (6)
  - Visual acuity reduced [Recovering/Resolving]
  - Motor dysfunction [Recovering/Resolving]
  - Cerebrovascular accident [Recovering/Resolving]
  - Epilepsy [Recovering/Resolving]
  - Memory impairment [Recovering/Resolving]
  - Diabetes mellitus [Recovering/Resolving]

NARRATIVE: CASE EVENT DATE: 20150401
